FAERS Safety Report 16999864 (Version 1)
Quarter: 2019Q4

REPORT INFORMATION
  Report Type: Spontaneous
  Country: US (occurrence: US)
  Receive Date: 20190925
  Receipt Date: 20190925
  Transmission Date: 20200122
  Serious: Yes (Disabling)
  Sender: FDA-Public Use
  Company Number: None

PATIENT
  Age: 59 Year
  Sex: Female
  Weight: 52.16 kg

DRUGS (16)
  1. RECLAST [Concomitant]
     Active Substance: ZOLEDRONIC ACID
  2. FLEXERIL [Concomitant]
     Active Substance: CYCLOBENZAPRINE HYDROCHLORIDE
  3. OXYCODONE [Concomitant]
     Active Substance: OXYCODONE
  4. TYLENOL EXTRA STRENGTH [Concomitant]
     Active Substance: ACETAMINOPHEN
  5. RECLAST [Suspect]
     Active Substance: ZOLEDRONIC ACID
     Indication: OSTEOPOROSIS
     Dosage: ?          QUANTITY:5MG/100MG;OTHER FREQUENCY:YEARLY;?
     Route: 042
     Dates: start: 20170112, end: 20180126
  6. ESTRACE [Concomitant]
     Active Substance: ESTRADIOL
  7. HYDROXYZINE [Concomitant]
     Active Substance: HYDROXYZINE HYDROCHLORIDE
  8. SOUL SKIN HAIR NAIL [Concomitant]
  9. XANAX [Concomitant]
     Active Substance: ALPRAZOLAM
  10. CHLORHEXIDINE [Concomitant]
     Active Substance: CHLORHEXIDINE
  11. TIZANIDINE. [Concomitant]
     Active Substance: TIZANIDINE
  12. PANTOPRAZOLE [Concomitant]
     Active Substance: PANTOPRAZOLE
  13. AUGUMENTIN [Concomitant]
  14. VITAMIN D [Concomitant]
     Active Substance: VITAMIN D NOS
  15. CALCIUM [Concomitant]
     Active Substance: CALCIUM
  16. BLACKBERRY RAW HONEY [Concomitant]

REACTIONS (12)
  - Jaw fracture [None]
  - Lymphadenopathy [None]
  - Lymph node pain [None]
  - Dry skin [None]
  - Eye disorder [None]
  - Influenza [None]
  - Pruritus [None]
  - Somnolence [None]
  - Pyrexia [None]
  - Decreased appetite [None]
  - Alopecia [None]
  - Feeling cold [None]

NARRATIVE: CASE EVENT DATE: 20170112
